FAERS Safety Report 7073198-7 (Version None)
Quarter: 2010Q4

REPORT INFORMATION
  Report Type: 
  Country: None (occurrence: None)
  Receive Date: 20101029
  Receipt Date: 20101018
  Transmission Date: 20110411
  Serious: Yes (Hospitalization)
  Sender: FDA-Public Use
  Company Number: FR-SANOFI-AVENTIS-2010SA063172

PATIENT
  Age: 92 Year
  Sex: Female

DRUGS (8)
  1. LOVENOX [Suspect]
     Indication: THROMBOSIS PROPHYLAXIS
     Route: 058
     Dates: start: 20100721, end: 20100805
  2. CEFTRIAXONE [Suspect]
     Indication: BRONCHITIS
     Route: 058
     Dates: start: 20100724, end: 20100731
  3. SALBUTAMOL [Suspect]
     Route: 055
     Dates: start: 20100727, end: 20100730
  4. AMOXICILLIN AND CLAVULANATE POTASSIUM [Concomitant]
     Indication: BRONCHITIS
     Route: 048
     Dates: start: 20100719, end: 20100721
  5. AMOXICILLIN AND CLAVULANATE POTASSIUM [Concomitant]
     Route: 048
     Dates: start: 20100719, end: 20100721
  6. AMOXICILLIN AND CLAVULANATE POTASSIUM [Concomitant]
     Route: 042
     Dates: start: 20100721, end: 20100723
  7. AMOXICILLIN AND CLAVULANATE POTASSIUM [Concomitant]
     Route: 042
     Dates: start: 20100721, end: 20100723
  8. DOLIPRANE [Concomitant]
     Route: 065

REACTIONS (1)
  - ECZEMA [None]
